FAERS Safety Report 12409158 (Version 26)
Quarter: 2018Q2

REPORT INFORMATION
  Report Type: Spontaneous
  Country: US (occurrence: US)
  Receive Date: 20160526
  Receipt Date: 20180423
  Transmission Date: 20180711
  Serious: Yes (Death, Hospitalization)
  Sender: FDA-Public Use
  Company Number: US-ACTELION-A-US2016-136643

PATIENT
  Age: 67 Year
  Sex: Male
  Weight: 75.28 kg

DRUGS (21)
  1. VELETRI [Suspect]
     Active Substance: EPOPROSTENOL
     Dosage: UNK
     Route: 042
  2. VELETRI [Suspect]
     Active Substance: EPOPROSTENOL
     Dosage: 64 NG/KG, PER MIN
     Route: 042
  3. METOLAZONE. [Concomitant]
     Active Substance: METOLAZONE
  4. METOPROLOL. [Concomitant]
     Active Substance: METOPROLOL
  5. DUTASTERIDE. [Concomitant]
     Active Substance: DUTASTERIDE
  6. REVATIO [Concomitant]
     Active Substance: SILDENAFIL CITRATE
     Dosage: 20 MG, 4 TABS
  7. VITAMIN D [Concomitant]
     Active Substance: CHOLECALCIFEROL
  8. DILTIAZEM. [Concomitant]
     Active Substance: DILTIAZEM
  9. BUMEX [Concomitant]
     Active Substance: BUMETANIDE
     Dosage: 2, BID
  10. TAMSULOSIN [Concomitant]
     Active Substance: TAMSULOSIN
  11. ADVAIR HFA [Concomitant]
     Active Substance: FLUTICASONE PROPIONATE\SALMETEROL XINAFOATE
  12. TRACLEER [Suspect]
     Active Substance: BOSENTAN
     Indication: PULMONARY ARTERIAL HYPERTENSION
     Dosage: 125 MG, BID
     Route: 048
  13. VELETRI [Suspect]
     Active Substance: EPOPROSTENOL
     Indication: PULMONARY ARTERIAL HYPERTENSION
     Dosage: 56 NG/KG, PER MIN
     Route: 042
     Dates: start: 20160413
  14. COUMADIN [Concomitant]
     Active Substance: WARFARIN SODIUM
  15. OMEPRAZOLE. [Concomitant]
     Active Substance: OMEPRAZOLE
  16. SPIRONOLACTONE. [Concomitant]
     Active Substance: SPIRONOLACTONE
  17. TRICOR [Concomitant]
     Active Substance: FENOFIBRATE
  18. TRACLEER [Suspect]
     Active Substance: BOSENTAN
     Dosage: 125 MG, BID
     Route: 048
  19. DIGOXIN. [Concomitant]
     Active Substance: DIGOXIN
     Dosage: 0.125 UNK, MON.,WED.,FRI.
  20. MULTIVITAMIN [Concomitant]
     Active Substance: VITAMINS
  21. POTASSIUM [Concomitant]
     Active Substance: POTASSIUM
     Dosage: 20 MEQ, UNK

REACTIONS (40)
  - Oedema peripheral [Unknown]
  - Oedema [Unknown]
  - Catheter site pain [Unknown]
  - Catheter site discharge [Unknown]
  - Palpitations [Unknown]
  - Respiration abnormal [Unknown]
  - Product deposit [Recovered/Resolved]
  - Cataract operation [Unknown]
  - Death [Fatal]
  - Urinary bladder haemorrhage [Unknown]
  - Bladder operation [Unknown]
  - Complication associated with device [Unknown]
  - Aspiration [Unknown]
  - Catheter site erythema [Unknown]
  - Pain in extremity [Unknown]
  - Dyspnoea [Unknown]
  - Thrombosis in device [Unknown]
  - Post procedural haemorrhage [Unknown]
  - Pleural effusion [Unknown]
  - Catheter site inflammation [Unknown]
  - Walking disability [Unknown]
  - Dyspnoea exertional [Unknown]
  - Device issue [Unknown]
  - Urinary retention [Unknown]
  - Fluid overload [Unknown]
  - Renal failure [Unknown]
  - Fluid retention [Unknown]
  - Pain in jaw [Not Recovered/Not Resolved]
  - Gastric haemorrhage [Unknown]
  - Pericardial effusion [Unknown]
  - Device occlusion [Recovered/Resolved]
  - Weight decreased [Unknown]
  - Device malfunction [Unknown]
  - Atrial fibrillation [Unknown]
  - Atrial flutter [Unknown]
  - Catheter placement [Unknown]
  - Bladder polypectomy [Unknown]
  - Catheter management [Unknown]
  - Epistaxis [Unknown]
  - Cataract [Unknown]

NARRATIVE: CASE EVENT DATE: 20161213
